FAERS Safety Report 6037326-4 (Version None)
Quarter: 2009Q1

REPORT INFORMATION
  Report Type: 
  Country: None (occurrence: None)
  Receive Date: 20090114
  Receipt Date: 20090106
  Transmission Date: 20090719
  Serious: Yes (Other)
  Sender: FDA-Public Use
  Company Number: PHEH2006US11442

PATIENT
  Sex: Female
  Weight: 84.807 kg

DRUGS (6)
  1. AREDIA [Suspect]
     Indication: MULTIPLE MYELOMA
  2. ZOMETA [Suspect]
     Indication: MULTIPLE MYELOMA
  3. AMOXICILLIN [Concomitant]
     Dosage: 500 MG, UNK
  4. ALTACE [Concomitant]
     Dosage: 10 MG, UNK
  5. HYDROCHLOROTHIAZIDE [Concomitant]
  6. EFFEXOR [Concomitant]

REACTIONS (34)
  - ANHEDONIA [None]
  - ANXIETY [None]
  - ARTHRALGIA [None]
  - ARTHROPATHY [None]
  - ARTIFICIAL CROWN PROCEDURE [None]
  - BONE DISORDER [None]
  - CHEST DISCOMFORT [None]
  - DECREASED INTEREST [None]
  - DEFORMITY [None]
  - DENTAL CARIES [None]
  - DYSPEPSIA [None]
  - EMOTIONAL DISTRESS [None]
  - ENDODONTIC PROCEDURE [None]
  - EXCESSIVE GRANULATION TISSUE [None]
  - EXOSTOSIS [None]
  - GENERAL PHYSICAL HEALTH DETERIORATION [None]
  - INFECTION [None]
  - JOINT SWELLING [None]
  - LIFE EXPECTANCY SHORTENED [None]
  - MOUTH INJURY [None]
  - MOUTH ULCERATION [None]
  - MULTIPLE MYELOMA [None]
  - OCULAR HYPERAEMIA [None]
  - ORAL DISORDER [None]
  - OSTEOARTHRITIS [None]
  - OSTEONECROSIS [None]
  - PAIN [None]
  - PRIMARY SEQUESTRUM [None]
  - ROAD TRAFFIC ACCIDENT [None]
  - SYNOVIAL CYST [None]
  - TOOTH ABSCESS [None]
  - TOOTH EXTRACTION [None]
  - TOOTH FRACTURE [None]
  - TOOTHACHE [None]
